FAERS Safety Report 10618634 (Version 1)
Quarter: 2014Q4

REPORT INFORMATION
  Report Type: Report from Study
  Country: US (occurrence: US)
  Receive Date: 20141202
  Receipt Date: 20141202
  Transmission Date: 20150529
  Serious: Yes (Hospitalization, Other)
  Sender: FDA-Public Use
  Company Number: PHEH2014US023540

PATIENT
  Age: 64 Year
  Sex: Female

DRUGS (5)
  1. FLUDROCORTISONE [Concomitant]
     Active Substance: FLUDROCORTISONE
     Indication: ORTHOSTATIC HYPOTENSION
     Dosage: 0.1 G, QD
     Route: 048
     Dates: start: 20140504, end: 20140804
  2. CLOZARIL [Suspect]
     Active Substance: CLOZAPINE
     Indication: SCHIZOAFFECTIVE DISORDER
     Dosage: 50 MG, BID
     Route: 048
     Dates: start: 20140504
  3. ATIVAN [Concomitant]
     Active Substance: LORAZEPAM
     Indication: ANXIETY
     Dosage: 0.5 G, TID
     Route: 048
     Dates: start: 20140504, end: 20140804
  4. BENZTROPINE [Concomitant]
     Active Substance: BENZTROPINE
     Indication: DYSTONIA
     Dosage: 1 G, BID
     Route: 048
     Dates: start: 20140504, end: 20140804
  5. CYMBALTA [Concomitant]
     Active Substance: DULOXETINE HYDROCHLORIDE
     Indication: DEPRESSION
     Dosage: 40 MG, QD
     Route: 048
     Dates: start: 20140504, end: 20140804

REACTIONS (3)
  - Laceration [Unknown]
  - Haemoglobin decreased [Unknown]
  - Fall [Recovered/Resolved]

NARRATIVE: CASE EVENT DATE: 20140504
